FAERS Safety Report 23550609 (Version 2)
Quarter: 2024Q1

REPORT INFORMATION
  Report Type: Spontaneous
  Country: US (occurrence: US)
  Receive Date: 20240221
  Receipt Date: 20240301
  Transmission Date: 20240409
  Serious: No
  Sender: FDA-Public Use
  Company Number: US-INCYTE CORPORATION-2024IN001797

PATIENT

DRUGS (1)
  1. JAKAFI [Suspect]
     Active Substance: RUXOLITINIB
     Indication: Autoimmune lymphoproliferative syndrome
     Dosage: 10 MILLIGRAM, BID
     Route: 048
     Dates: start: 202002

REACTIONS (3)
  - Ill-defined disorder [Unknown]
  - Herpes zoster [Unknown]
  - Off label use [Unknown]

NARRATIVE: CASE EVENT DATE: 20200201
